FAERS Safety Report 17596874 (Version 3)
Quarter: 2020Q2

REPORT INFORMATION
  Report Type: Spontaneous
  Country: IT (occurrence: IT)
  Receive Date: 20200330
  Receipt Date: 20200520
  Transmission Date: 20200713
  Serious: Yes (Hospitalization, Other)
  Sender: FDA-Public Use
  Company Number: IT-AUROBINDO-AUR-APL-2020-015537

PATIENT
  Age: 69 Year
  Sex: Female

DRUGS (7)
  1. IVABRADINE [Suspect]
     Active Substance: IVABRADINE
     Dosage: 15 MILLIGRAM, ONCE A DAY
     Route: 065
  2. BISOPROLOL 10 MG [Suspect]
     Active Substance: BISOPROLOL
     Indication: PRODUCT USED FOR UNKNOWN INDICATION
     Dosage: 10 MILLIGRAM
     Route: 065
  3. INSULIN [Concomitant]
     Active Substance: INSULIN NOS
     Indication: DIABETES MELLITUS
     Dosage: UNK
     Route: 065
  4. IVABRADINE [Suspect]
     Active Substance: IVABRADINE
     Indication: ANGINA PECTORIS
     Dosage: 5 MILLIGRAM, TWO TIMES A DAY
     Route: 065
  5. IVABRADINE [Suspect]
     Active Substance: IVABRADINE
     Dosage: 7.5 MILLIGRAM, TWO TIMES A DAY
     Route: 065
  6. IVABRADINE [Suspect]
     Active Substance: IVABRADINE
     Dosage: 10 MILLIGRAM, ONCE A DAY
     Route: 065
  7. ASPIRIN. [Concomitant]
     Active Substance: ASPIRIN
     Indication: PRODUCT USED FOR UNKNOWN INDICATION
     Dosage: UNK
     Route: 065

REACTIONS (5)
  - Drug ineffective [Recovered/Resolved]
  - Cardiac failure [Unknown]
  - Myocardial infarction [Unknown]
  - Angina pectoris [Recovered/Resolved]
  - Ejection fraction decreased [Unknown]
